FAERS Safety Report 19253320 (Version 1)
Quarter: 2021Q2

REPORT INFORMATION
  Report Type: Spontaneous
  Country: US (occurrence: US)
  Receive Date: 20210513
  Receipt Date: 20210513
  Transmission Date: 20210717
  Serious: Yes (Death, Hospitalization)
  Sender: FDA-Public Use
  Company Number: US-EMCURE PHARMACEUTICALS LTD-2021-EPL-001566

PATIENT
  Age: 30 Year
  Sex: Male
  Weight: 72.5 kg

DRUGS (5)
  1. VANCOMYCIN HYDROCHLORIDE. [Suspect]
     Active Substance: VANCOMYCIN HYDROCHLORIDE
     Indication: STAPHYLOCOCCAL SEPSIS
     Dosage: 27.7 MG/KG, ON DAY 1, 1 GRAM EVERY 12 HOURS
  2. VANCOMYCIN HYDROCHLORIDE. [Suspect]
     Active Substance: VANCOMYCIN HYDROCHLORIDE
     Dosage: 42.8 MG/KG, 1 GRAM EVERY 8 HOURS
  3. VANCOMYCIN HYDROCHLORIDE. [Suspect]
     Active Substance: VANCOMYCIN HYDROCHLORIDE
     Dosage: 55.5 MG/KG, 1 GRAM EVERY 6 HOURS
  4. VANCOMYCIN HYDROCHLORIDE. [Suspect]
     Active Substance: VANCOMYCIN HYDROCHLORIDE
     Dosage: 59 MG/KG, ON DAY 5 AND 6 RECEIVED TOTAL OF 4.25 GM PER DAY
  5. MEROPENAM [Suspect]
     Active Substance: MEROPENEM
     Indication: STAPHYLOCOCCAL SEPSIS
     Dosage: 1 GRAM, 1 DOSE PER 8HRS

REACTIONS (2)
  - Acute respiratory distress syndrome [Fatal]
  - Treatment failure [Unknown]
